FAERS Safety Report 9457650 (Version 1)
Quarter: 2013Q3

REPORT INFORMATION
  Report Type: Spontaneous
  Country: US (occurrence: None)
  Receive Date: 20130809
  Receipt Date: 20130809
  Transmission Date: 20140515
  Serious: Yes (Hospitalization)
  Sender: FDA-Public Use
  Company Number: 2013STPI000305

PATIENT
  Age: 67 Year
  Sex: Female

DRUGS (12)
  1. MATULANE (PROCARBAZINE HYDROCHLORIDE) CAPSULE, 50MG [Suspect]
     Indication: HODGKIN^S DISEASE
     Route: 048
     Dates: start: 201302
  2. DILANTIN (PHENYTOIN SODIUM) [Concomitant]
  3. DILAUDID (HYDROMORPHONE HYDROCHLORIDE) [Concomitant]
  4. ZYPREXA (OLANZAPINE) [Concomitant]
  5. PROTONIX (PANTOPRAZOLE SODIUM SESQUIHYDRATE) [Concomitant]
  6. DIFLUCAN (FLUCONAZOLE) [Concomitant]
  7. ACYCLOVIR (ACICLOVIR) [Concomitant]
  8. VIMPAT (LACOSAMIDE) [Concomitant]
  9. LEVOTHYROXINE SODIUM (LEVOTHYROXINE SODIUM) [Concomitant]
  10. ATIVAN (LORAZEPAM) [Concomitant]
  11. KEPPRA (LEVETIRACETAM) [Concomitant]
  12. VITAMIN D (ERGOCALCIFEROL) [Concomitant]

REACTIONS (4)
  - Status epilepticus [None]
  - Brain abscess [None]
  - Mental status changes [None]
  - Urinary tract infection [None]
